FAERS Safety Report 9308889 (Version 2)
Quarter: 2013Q2

REPORT INFORMATION
  Report Type: Spontaneous
  Country: US (occurrence: US)
  Receive Date: 20130524
  Receipt Date: 20130626
  Transmission Date: 20140414
  Serious: Yes (Other)
  Sender: FDA-Public Use
  Company Number: PHHY2013US051021

PATIENT
  Age: 66 Year
  Sex: Male

DRUGS (3)
  1. AMLODIPINE [Suspect]
  2. ENALAPRIL [Concomitant]
  3. ATENOLOL [Concomitant]

REACTIONS (9)
  - Eczema [Unknown]
  - Skin plaque [Unknown]
  - Erythema [Unknown]
  - Papule [Unknown]
  - Skin lesion [Unknown]
  - Rash [Recovered/Resolved]
  - Acanthosis [Unknown]
  - Parakeratosis [Unknown]
  - Blister [Unknown]
